FAERS Safety Report 26195724 (Version 1)
Quarter: 2025Q4

REPORT INFORMATION
  Report Type: Spontaneous
  Country: US (occurrence: None)
  Receive Date: 20251224
  Receipt Date: 20251224
  Transmission Date: 20260117
  Serious: No
  Sender: ALKERMES
  Company Number: US-ALKERMES INC.-ALK-2025-003323

PATIENT
  Sex: Male
  Weight: 76.19 kg

DRUGS (7)
  1. LYBALVI [Suspect]
     Active Substance: OLANZAPINE\SAMIDORPHAN L-MALATE
     Indication: Schizophrenia
     Dosage: 20/10MG, BID
     Route: 061
  2. LYBALVI [Suspect]
     Active Substance: OLANZAPINE\SAMIDORPHAN L-MALATE
     Dosage: 20/10MG, QD
     Route: 061
  3. LYBALVI [Suspect]
     Active Substance: OLANZAPINE\SAMIDORPHAN L-MALATE
     Dosage: 10/10MG, QD
     Route: 061
  4. BENZTROPINE [Concomitant]
     Active Substance: BENZTROPINE
     Indication: Product used for unknown indication
     Dosage: 1 MILLIGRAM
     Route: 065
  5. FLUPHENAZINE [Concomitant]
     Active Substance: FLUPHENAZINE
     Indication: Product used for unknown indication
     Dosage: UNK
     Route: 065
  6. HALDOL [Concomitant]
     Active Substance: HALOPERIDOL
     Indication: Product used for unknown indication
     Dosage: UNK
     Route: 065
  7. INVEGA SUSTENNA [Concomitant]
     Active Substance: PALIPERIDONE PALMITATE
     Indication: Product used for unknown indication
     Dosage: 234 MILLIGRAM
     Route: 065

REACTIONS (2)
  - Off label use [Unknown]
  - Acute psychosis [Unknown]
